FAERS Safety Report 13924167 (Version 1)
Quarter: 2017Q3

REPORT INFORMATION
  Report Type: Spontaneous
  Country: US (occurrence: None)
  Receive Date: 20170830
  Receipt Date: 20170830
  Transmission Date: 20171127
  Serious: Yes (Hospitalization)
  Sender: FDA-Public Use
  Company Number: None

PATIENT
  Sex: Male

DRUGS (2)
  1. OLD SPICE WILD COLLECTION WOLFTHORN INVISIBLE [Suspect]
     Active Substance: ALUMINUM ZIRCONIUM TRICHLOROHYDREX GLY
  2. OLD SPICE WILD COLLECTION WOLFTHORN INVISIBLE [Suspect]
     Active Substance: ALUMINUM ZIRCONIUM TRICHLOROHYDREX GLY

REACTIONS (2)
  - Drug hypersensitivity [None]
  - No reaction on previous exposure to drug [None]
